FAERS Safety Report 7750406-8 (Version None)
Quarter: 2011Q3

REPORT INFORMATION
  Report Type: 
  Country: None (occurrence: None)
  Receive Date: 20110914
  Receipt Date: 20110907
  Transmission Date: 20111222
  Serious: Yes (Death, Hospitalization)
  Sender: FDA-Public Use
  Company Number: CZ-ELI_LILLY_AND_COMPANY-CZ201108000111

PATIENT
  Sex: Male

DRUGS (15)
  1. GEMCITABINE HYDROCHLORIDE [Suspect]
     Dosage: 1602 MG, ON DAY 1 AND 8
     Route: 042
  2. TRAMADOL HCL [Concomitant]
     Dosage: UNK
     Dates: start: 20090701
  3. GEMCITABINE HYDROCHLORIDE [Suspect]
     Indication: NON-SMALL CELL LUNG CANCER
     Dosage: 2136 MG, ON DAY 1 AND 8
     Route: 042
     Dates: start: 20090730
  4. ATORVASTATIN CALCIUM [Concomitant]
     Dosage: UNK
     Dates: start: 20060101
  5. OMEPRAZOLUM [Concomitant]
     Dosage: UNK
     Dates: start: 20090813
  6. AMINOPHYLLIN TAB [Concomitant]
     Dosage: UNK
     Dates: start: 20090805
  7. METOPROLOL SUCCINATE [Concomitant]
     Dosage: UNK
     Dates: start: 19980101
  8. CARBOPLATIN [Suspect]
     Dosage: 330 MG, ON DAY 1
     Route: 042
  9. PREDNISONUM [Concomitant]
     Dosage: UNK
     Dates: start: 20090803
  10. CARBOPLATIN [Suspect]
     Indication: NON-SMALL CELL LUNG CANCER
     Dosage: 445.8 MG, ON DAY 1
     Route: 042
     Dates: start: 20090730
  11. FINASTERIDE [Concomitant]
     Dosage: UNK
     Dates: start: 20060101
  12. SPIRONOLACTONUM [Concomitant]
     Dosage: UNK
     Dates: start: 20060101
  13. ACIDUM ACETYLSALICYLICUM [Concomitant]
     Dosage: UNK
     Dates: start: 20090701
  14. BEVACIZUMAB [Suspect]
     Indication: NON-SMALL CELL LUNG CANCER
     Dosage: 42.6 ML, ON DAY 1
     Route: 042
     Dates: start: 20090730
  15. FUROSEMIDUM                        /00032602/ [Concomitant]
     Dosage: UNK
     Dates: start: 20060101

REACTIONS (5)
  - SUPRAVENTRICULAR TACHYCARDIA [None]
  - BRONCHOPNEUMONIA [None]
  - THROMBOCYTOPENIA [None]
  - PULMONARY OEDEMA [None]
  - CARDIOPULMONARY FAILURE [None]
